FAERS Safety Report 5603481-0 (Version None)
Quarter: 2008Q1

REPORT INFORMATION
  Report Type: 
  Country: None (occurrence: None)
  Receive Date: 20080122
  Receipt Date: 20080108
  Transmission Date: 20080703
  Serious: Yes (Death, Other)
  Sender: FDA-Public Use
  Company Number: 2007BI024839

PATIENT
  Age: 58 Year
  Sex: Male
  Weight: 99.7913 kg

DRUGS (7)
  1. TYSABRI [Suspect]
     Indication: MULTIPLE SCLEROSIS
     Dosage: 300 MG; QM; IV
     Route: 042
     Dates: start: 20061226, end: 20071011
  2. AVONEX [Concomitant]
  3. CLONAZEPAM [Concomitant]
  4. LYRICA [Concomitant]
  5. NORCO [Concomitant]
  6. PAROXETINE [Concomitant]
  7. ENALAPRIL [Concomitant]

REACTIONS (5)
  - ACCIDENT [None]
  - DROWNING [None]
  - FALL [None]
  - GAIT DISTURBANCE [None]
  - HEAD INJURY [None]
